FAERS Safety Report 20450066 (Version 2)
Quarter: 2022Q1

REPORT INFORMATION
  Report Type: Spontaneous
  Country: RU (occurrence: None)
  Receive Date: 20220209
  Receipt Date: 20220324
  Transmission Date: 20220423
  Serious: Yes (Other)
  Sender: FDA-Public Use
  Company Number: RU-Eisai Medical Research-EC-2022-107955

PATIENT
  Age: 11 Year
  Sex: Male
  Weight: 30 kg

DRUGS (10)
  1. FYCOMPA [Suspect]
     Active Substance: PERAMPANEL
     Indication: Epilepsy
     Route: 048
     Dates: start: 202102, end: 20210814
  2. FYCOMPA [Suspect]
     Active Substance: PERAMPANEL
     Route: 048
     Dates: start: 20210815, end: 2021
  3. FYCOMPA [Suspect]
     Active Substance: PERAMPANEL
     Route: 048
     Dates: start: 2021, end: 202112
  4. SAZAR [Concomitant]
     Indication: Epilepsy
     Dosage: DOSE AND FREQUENCY UNKNOWN
     Route: 048
     Dates: start: 20200829, end: 2020
  5. SAZAR [Concomitant]
     Route: 048
     Dates: start: 2020, end: 202009
  6. SAZAR [Concomitant]
     Route: 048
     Dates: start: 202108, end: 2021
  7. SAZAR [Concomitant]
     Dosage: DOSE AND FREQUENCY UNKNOWN (UP-TITRATION)
     Route: 048
     Dates: start: 2021, end: 2021
  8. SAZAR [Concomitant]
     Route: 048
     Dates: start: 2021, end: 202112
  9. VALPROATE SODIUM [Concomitant]
     Active Substance: VALPROATE SODIUM
     Indication: Partial seizures
     Dosage: DOSE AND FREQUENCY UNKNOWN
     Route: 065
     Dates: start: 2011
  10. VALPROATE SODIUM [Concomitant]
     Active Substance: VALPROATE SODIUM
     Route: 065
     Dates: start: 2019

REACTIONS (1)
  - Mental disorder due to a general medical condition [Unknown]

NARRATIVE: CASE EVENT DATE: 20210510
